FAERS Safety Report 5849697-X (Version None)
Quarter: 2008Q3

REPORT INFORMATION
  Report Type: 
  Country: None (occurrence: None)
  Receive Date: 20080818
  Receipt Date: 20080818
  Transmission Date: 20090109
  Serious: Yes (Hospitalization)
  Sender: FDA-Public Use
  Company Number: None

PATIENT
  Sex: Male

DRUGS (2)
  1. VALPROIC ACID [Suspect]
     Indication: BIPOLAR DISORDER
     Dosage: 500MG BID PO
     Route: 048
     Dates: start: 20080520, end: 20080718
  2. LAMICTAL [Suspect]
     Indication: BIPOLAR DISORDER
     Dosage: UNKNOWN
     Dates: start: 20080611, end: 20080718

REACTIONS (4)
  - MENINGITIS ASEPTIC [None]
  - PAIN [None]
  - PRURITUS [None]
  - RASH MACULO-PAPULAR [None]
